FAERS Safety Report 9493715 (Version 2)
Quarter: 2013Q4

REPORT INFORMATION
  Report Type: Spontaneous
  Country: GB (occurrence: GB)
  Receive Date: 20130902
  Receipt Date: 20131028
  Transmission Date: 20140711
  Serious: Yes (Other)
  Sender: FDA-Public Use
  Company Number: GB-JNJFOC-20130816998

PATIENT
  Age: 62 Year
  Sex: Male
  Weight: 99 kg

DRUGS (11)
  1. STELARA [Suspect]
     Indication: PSORIASIS
     Dosage: RECEIVED 11 INJECTIONS
     Route: 058
     Dates: start: 20110101
  2. MELOXICAM [Concomitant]
     Route: 048
  3. RANITIDINE [Concomitant]
     Route: 048
  4. SIMVASTATIN [Concomitant]
     Route: 048
  5. TAMSULOSIN [Concomitant]
     Route: 048
  6. ZOPICLONE [Concomitant]
     Route: 048
  7. COLECALCIFEROL [Concomitant]
     Route: 048
  8. DIHYDROCODEINE [Concomitant]
     Route: 048
  9. FINASTERIDE [Concomitant]
     Route: 048
  10. FLUTICASONE/SALMETEROL [Concomitant]
     Dosage: 250/25 MICROGRAMS
     Route: 048
  11. SALBUTAMOL [Concomitant]
     Dosage: 250/25 MICROGRAMS
     Route: 048

REACTIONS (2)
  - Cellulitis [Recovered/Resolved]
  - Psoriasis [Recovering/Resolving]
